FAERS Safety Report 5475532-8 (Version None)
Quarter: 2007Q3

REPORT INFORMATION
  Report Type: 
  Country: None (occurrence: None)
  Receive Date: 20070904
  Receipt Date: 20070514
  Transmission Date: 20080115
  Serious: No
  Sender: FDA-Public Use
  Company Number: PHEH2007US07333

PATIENT

DRUGS (1)
  1. ENABLEX [Suspect]
     Dosage: 7.5 MG, QHS
     Dates: start: 20070509

REACTIONS (1)
  - DRUG INEFFECTIVE [None]
